FAERS Safety Report 15339665 (Version 2)
Quarter: 2018Q4

REPORT INFORMATION
  Report Type: Spontaneous
  Country: CA (occurrence: CA)
  Receive Date: 20180831
  Receipt Date: 20181219
  Transmission Date: 20190204
  Serious: Yes (Hospitalization, Other)
  Sender: FDA-Public Use
  Company Number: CA-PFIZER INC-2018345936

PATIENT
  Age: 59 Year
  Sex: Female

DRUGS (7)
  1. EFFEXOR XR [Suspect]
     Active Substance: VENLAFAXINE HYDROCHLORIDE
     Indication: ANXIETY
     Dosage: 225 MG, 1X/DAY
     Dates: start: 2004
  2. EFFEXOR XR [Suspect]
     Active Substance: VENLAFAXINE HYDROCHLORIDE
     Indication: AGITATION
     Dosage: 150 MG, UNK
     Dates: start: 2008, end: 2014
  3. DIOVAN [Concomitant]
     Active Substance: VALSARTAN
     Indication: HYPERTENSION
     Dosage: 160/12.5 MG
     Dates: start: 2003
  4. VITAMIN D [COLECALCIFEROL] [Concomitant]
     Dosage: 1000 MG, UNK
     Dates: start: 2000
  5. EFFEXOR XR [Suspect]
     Active Substance: VENLAFAXINE HYDROCHLORIDE
     Dosage: 235 MG, UNK
     Dates: start: 20140314
  6. EFFEXOR XR [Suspect]
     Active Substance: VENLAFAXINE HYDROCHLORIDE
     Dosage: UNK
  7. CARBOCAL D 400 [Concomitant]
     Dosage: 400 IU, 1X/DAY
     Dates: start: 1998

REACTIONS (4)
  - Pneumonia [Recovered/Resolved]
  - Overdose [Recovered/Resolved]
  - Breast cancer [Unknown]
  - Myelodysplastic syndrome [Not Recovered/Not Resolved]

NARRATIVE: CASE EVENT DATE: 2007
